FAERS Safety Report 12079085 (Version 1)
Quarter: 2016Q1

REPORT INFORMATION
  Report Type: Spontaneous
  Country: US (occurrence: US)
  Receive Date: 20160216
  Receipt Date: 20160216
  Transmission Date: 20160526
  Serious: No
  Sender: FDA-Public Use
  Company Number: US-PFIZER INC-2016057781

PATIENT
  Age: 73 Year
  Sex: Male
  Weight: 97.52 kg

DRUGS (1)
  1. ADVIL [Suspect]
     Active Substance: IBUPROFEN
     Indication: ARTHRALGIA
     Dosage: TAKE A COUPLE EVERY 2 TO 4 DAYS

REACTIONS (1)
  - Fall [Unknown]

NARRATIVE: CASE EVENT DATE: 201601
